FAERS Safety Report 6419017-0 (Version None)
Quarter: 2009Q4

REPORT INFORMATION
  Report Type: 
  Country: None (occurrence: None)
  Receive Date: 20091029
  Receipt Date: 20091021
  Transmission Date: 20100525
  Serious: Yes (Death, Other)
  Sender: FDA-Public Use
  Company Number: US-WYE-H07835509

PATIENT
  Sex: Female

DRUGS (4)
  1. PREMARIN [Suspect]
  2. ESTRADIOL [Suspect]
  3. ESTROGENS [Suspect]
  4. ESTROGEN NOS [Suspect]

REACTIONS (2)
  - BREAST CANCER [None]
  - OVARIAN CANCER [None]
